FAERS Safety Report 25336080 (Version 4)
Quarter: 2025Q3

REPORT INFORMATION
  Report Type: Spontaneous
  Country: EU (occurrence: EU)
  Receive Date: 20250520
  Receipt Date: 20250730
  Transmission Date: 20251020
  Serious: Yes (Other)
  Sender: NOVARTIS
  Company Number: EU-TEVA-VS-3330586

PATIENT
  Age: 47 Year
  Sex: Female

DRUGS (6)
  1. CARBAMAZEPINE [Interacting]
     Active Substance: CARBAMAZEPINE
     Indication: Trigeminal neuralgia
     Dosage: 800 MG, QD
     Route: 065
  2. TRAMADOL [Interacting]
     Active Substance: TRAMADOL
     Indication: Facial pain
     Dosage: 200 MG, BID (2X200 MG)
     Route: 048
  3. TRAMADOL [Interacting]
     Active Substance: TRAMADOL
     Dosage: 400 MG, QD (200 MILLIGRAM, TWO TIMES A DAY)
     Route: 048
  4. TRAMADOL [Interacting]
     Active Substance: TRAMADOL
     Route: 048
  5. CYANOCOBALAMIN\PYRIDOXINE HYDROCHLORIDE\THIAMINE [Suspect]
     Active Substance: CYANOCOBALAMIN\PYRIDOXINE HYDROCHLORIDE\THIAMINE
     Indication: Trigeminal neuralgia
     Route: 065
  6. Neurovit [Concomitant]
     Indication: Product used for unknown indication
     Route: 065

REACTIONS (2)
  - Seizure [Unknown]
  - Drug interaction [Unknown]
